FAERS Safety Report 7134324-4 (Version None)
Quarter: 2010Q4

REPORT INFORMATION
  Report Type: 
  Country: None (occurrence: None)
  Receive Date: 20101117
  Receipt Date: 20101108
  Transmission Date: 20110411
  Serious: Yes (Hospitalization)
  Sender: FDA-Public Use
  Company Number: 2010EU005372

PATIENT
  Age: 35 Year
  Sex: Female

DRUGS (1)
  1. PROTOPIC [Suspect]

REACTIONS (2)
  - BLOOD LACTATE DEHYDROGENASE INCREASED [None]
  - HODGKIN'S DISEASE [None]
